FAERS Safety Report 8288703-2 (Version None)
Quarter: 2012Q2

REPORT INFORMATION
  Report Type: 
  Country: None (occurrence: None)
  Receive Date: 20120417
  Receipt Date: 20120410
  Transmission Date: 20120825
  Serious: Yes (Hospitalization)
  Sender: FDA-Public Use
  Company Number: DE-BIOGENIDEC-2012BI005449

PATIENT
  Age: 49 Year
  Sex: Male

DRUGS (4)
  1. ACETAMINOPHEN [Concomitant]
  2. DIPYRONE TAB [Concomitant]
  3. TYSABRI [Suspect]
     Indication: MULTIPLE SCLEROSIS
     Route: 042
     Dates: start: 20080104
  4. ENOXAPARIN SODIUM [Concomitant]

REACTIONS (1)
  - LOWER LIMB FRACTURE [None]
